FAERS Safety Report 23133825 (Version 1)
Quarter: 2023Q4

REPORT INFORMATION
  Report Type: Spontaneous
  Country: CN (occurrence: CN)
  Receive Date: 20231101
  Receipt Date: 20231101
  Transmission Date: 20240109
  Serious: Yes (Life-Threatening, Other)
  Sender: FDA-Public Use
  Company Number: CN-BAYER-2023A156287

PATIENT
  Age: 33 Year
  Sex: Female
  Weight: 51 kg

DRUGS (1)
  1. ULTRAVIST [Suspect]
     Active Substance: IOPROMIDE
     Indication: Angiogram
     Dosage: 100 ML, ONCE
     Route: 048
     Dates: start: 20231022, end: 20231022

REACTIONS (4)
  - Urticaria [Recovered/Resolved]
  - Generalised oedema [None]
  - Dysphonia [None]
  - Abdominal discomfort [None]

NARRATIVE: CASE EVENT DATE: 20231022
